FAERS Safety Report 5163397-3 (Version None)
Quarter: 2006Q4

REPORT INFORMATION
  Report Type: 
  Country: None (occurrence: None)
  Receive Date: 20061204
  Receipt Date: 20061122
  Transmission Date: 20070319
  Serious: Yes (Hospitalization, Other)
  Sender: FDA-Public Use
  Company Number: PHFR2006GB03474

PATIENT
  Age: 88 Year
  Sex: Female

DRUGS (7)
  1. LETROZOLE [Suspect]
     Indication: BREAST CANCER
     Dosage: 2.5MG/DAY
     Route: 048
     Dates: start: 20060615, end: 20060817
  2. ATENOLOL [Concomitant]
     Indication: HYPERTENSION
     Dosage: 100 MG, QD
     Route: 048
  3. METFORMIN [Concomitant]
     Dosage: 850 MG, TID
  4. ACETAMINOPHEN [Concomitant]
     Dosage: 1 G, QID
     Route: 048
  5. QUININE SULFATE [Concomitant]
     Dosage: 300MG/DAY
     Route: 048
  6. RAMIPRIL [Concomitant]
     Dosage: 10 MG, QD
     Route: 048
  7. SERTRALINE [Concomitant]
     Dosage: 50 MG, QD
     Route: 048

REACTIONS (8)
  - BACK PAIN [None]
  - BODY TEMPERATURE INCREASED [None]
  - EMOTIONAL DISTRESS [None]
  - FALL [None]
  - HYPOTENSION [None]
  - METASTASIS [None]
  - PARANOIA [None]
  - WHITE BLOOD CELL COUNT INCREASED [None]
